FAERS Safety Report 7397242-2 (Version None)
Quarter: 2011Q2

REPORT INFORMATION
  Report Type: 
  Country: None (occurrence: None)
  Receive Date: 20110406
  Receipt Date: 20110322
  Transmission Date: 20111010
  Serious: Yes (Death)
  Sender: FDA-Public Use
  Company Number: US-BAYER-200915971NA

PATIENT
  Sex: Male

DRUGS (10)
  1. LOTREL [Concomitant]
     Indication: HYPERTENSION
     Dosage: 1 DAILY
     Route: 048
  2. METOPROLOL [Concomitant]
  3. ACETYLSALICYLIC ACID SRT [Concomitant]
     Dosage: 325 MG, QD
  4. VANCOMYCIN [Concomitant]
     Dosage: UNK
  5. POTASSIUM [Concomitant]
  6. LASIX [Concomitant]
  7. LEVAQUIN [Concomitant]
  8. TRASYLOL [Suspect]
     Indication: CORONARY ARTERY BYPASS
     Dosage: 5,750,000 KIU
     Route: 042
     Dates: start: 20070906
  9. ZOSYN [Concomitant]
  10. ISOSORBIDE DINITRATE [Concomitant]

REACTIONS (4)
  - INJURY [None]
  - ANXIETY [None]
  - RENAL FAILURE [None]
  - EMOTIONAL DISTRESS [None]
